FAERS Safety Report 17989062 (Version 1)
Quarter: 2020Q3

REPORT INFORMATION
  Report Type: Spontaneous
  Country: US (occurrence: US)
  Receive Date: 20200707
  Receipt Date: 20200707
  Transmission Date: 20201103
  Serious: Yes (Disabling)
  Sender: FDA-Public Use
  Company Number: None

PATIENT
  Age: 56 Year
  Sex: Female
  Weight: 56.25 kg

DRUGS (2)
  1. DEXAMETHASONE SOIDUM PHOSPHATE INJECTION [Suspect]
     Active Substance: DEXAMETHASONE SODIUM PHOSPHATE
     Indication: SINUSITIS
     Dosage: ?          OTHER STRENGTH:UNITS;QUANTITY:1 INJECTION(S);?
     Route: 058
     Dates: start: 20190607, end: 20190607
  2. WOMEN^S COMPLETE [Concomitant]

REACTIONS (5)
  - Tremor [None]
  - Headache [None]
  - Hallucination [None]
  - Feeling abnormal [None]
  - Amnesia [None]

NARRATIVE: CASE EVENT DATE: 20190607
